FAERS Safety Report 25344650 (Version 1)
Quarter: 2025Q2

REPORT INFORMATION
  Report Type: Spontaneous
  Country: CN (occurrence: CN)
  Receive Date: 20250522
  Receipt Date: 20250522
  Transmission Date: 20250717
  Serious: Yes (Hospitalization, Other)
  Sender: BAXTER
  Company Number: None

PATIENT
  Age: 16 Year
  Sex: Male
  Weight: 70 kg

DRUGS (5)
  1. CYCLOPHOSPHAMIDE [Suspect]
     Active Substance: CYCLOPHOSPHAMIDE
     Indication: Acute lymphocytic leukaemia
     Dosage: 1.9 G, QD, ST (D1)
     Route: 041
     Dates: start: 20250304, end: 20250304
  2. SODIUM CHLORIDE [Suspect]
     Active Substance: SODIUM CHLORIDE
     Dosage: 250 ML, QD, 0.9 %, (WITH CYCLOPHOSPHAMIDE FOR INJECTION 1.9G)
     Route: 041
     Dates: start: 20250304, end: 20250304
  3. SODIUM CHLORIDE [Suspect]
     Active Substance: SODIUM CHLORIDE
     Dosage: 250 ML, BID, (WITH CYTARABINE FOR INJECTION 1.9G)
     Route: 041
     Dates: start: 20250304, end: 20250306
  4. MERCAPTOPURINE [Suspect]
     Active Substance: MERCAPTOPURINE
     Indication: Acute lymphocytic leukaemia
     Dosage: 95 MG, QD, QN (D1-D3)
     Route: 048
     Dates: start: 20250304, end: 20250306
  5. CYTARABINE [Suspect]
     Active Substance: CYTARABINE
     Indication: Acute lymphocytic leukaemia
     Dosage: 1.9 G, BID, Q12H (D1-D3)
     Route: 041
     Dates: start: 20250304, end: 20250306

REACTIONS (1)
  - Myelosuppression [Recovering/Resolving]

NARRATIVE: CASE EVENT DATE: 20250314
